FAERS Safety Report 21205760 (Version 2)
Quarter: 2022Q3

REPORT INFORMATION
  Report Type: Spontaneous
  Country: JP (occurrence: JP)
  Receive Date: 20220812
  Receipt Date: 20220825
  Transmission Date: 20221027
  Serious: Yes (Other)
  Sender: FDA-Public Use
  Company Number: JP-NOVARTISPH-NVSJ2022JP095792

PATIENT
  Age: 44 Year
  Sex: Male

DRUGS (2)
  1. DICLOFENAC SODIUM [Suspect]
     Active Substance: DICLOFENAC SODIUM
     Indication: Pyrexia
     Dosage: UNK
     Route: 054
     Dates: start: 1991, end: 1995
  2. INTERFERON [Concomitant]
     Active Substance: INTERFERON
     Indication: Product used for unknown indication
     Dosage: UNK
     Route: 065
     Dates: start: 1991, end: 1995

REACTIONS (2)
  - Renal cancer [Unknown]
  - Blood creatinine increased [Unknown]

NARRATIVE: CASE EVENT DATE: 20200101
